FAERS Safety Report 9292194 (Version 1)
Quarter: 2013Q2

REPORT INFORMATION
  Report Type: Spontaneous
  Country: ES (occurrence: ES)
  Receive Date: 20130516
  Receipt Date: 20130516
  Transmission Date: 20140414
  Serious: Yes (Hospitalization)
  Sender: FDA-Public Use
  Company Number: ES-US-EMD SERONO, INC.-E2B_7209635

PATIENT
  Age: 53 Year
  Sex: Male

DRUGS (2)
  1. REBIF [Suspect]
     Indication: MULTIPLE SCLEROSIS
     Dosage: 44MCG/0.5ML
     Route: 058
     Dates: start: 200305, end: 201111
  2. ATORVASTATIN [Concomitant]
     Indication: HYPERLIPIDAEMIA
     Route: 048
     Dates: start: 2003

REACTIONS (1)
  - Pancreatitis [Recovered/Resolved]
